FAERS Safety Report 9824694 (Version 1)
Quarter: 2014Q1

REPORT INFORMATION
  Report Type: Report from Study
  Country: DE (occurrence: DE)
  Receive Date: 20140117
  Receipt Date: 20140117
  Transmission Date: 20141002
  Serious: Yes (Other)
  Sender: FDA-Public Use
  Company Number: DE-ROCHE-1333587

PATIENT
  Sex: 0

DRUGS (3)
  1. VEMURAFENIB [Suspect]
     Indication: HAIRY CELL LEUKAEMIA
     Route: 065
  2. VEMURAFENIB [Suspect]
     Dosage: IN 0NE PATIENT
     Route: 065
  3. VEMURAFENIB [Suspect]
     Dosage: IN ONE PATIENT
     Route: 065

REACTIONS (4)
  - Neutropenia [Unknown]
  - Arthritis [Unknown]
  - Blood bilirubin increased [Unknown]
  - Skin papilloma [Unknown]
